FAERS Safety Report 25955364 (Version 1)
Quarter: 2025Q4

REPORT INFORMATION
  Report Type: Report from Study
  Country: US (occurrence: US)
  Receive Date: 20251024
  Receipt Date: 20251024
  Transmission Date: 20260118
  Serious: Yes (Hospitalization, Other)
  Sender: IPSEN BIOPHARMACEUTICALS, INC.
  Company Number: US-China IPSEN SC-2023-25859

PATIENT
  Age: 66 Year
  Sex: Male
  Weight: 85.5 kg

DRUGS (33)
  1. ONIVYDE [Suspect]
     Active Substance: IRINOTECAN HYDROCHLORIDE
     Indication: Rectal cancer metastatic
     Dosage: 104MG, Q2 WEEKS 28 DAY CYCLE
     Dates: start: 20231030, end: 20231113
  2. ONIVYDE [Suspect]
     Active Substance: IRINOTECAN HYDROCHLORIDE
     Dosage: 50 MG/M2, Q2 WEEKS 28 DAY CYCLE
     Dates: start: 20231113
  3. LONSURF [Suspect]
     Active Substance: TIPIRACIL HYDROCHLORIDE\TRIFLURIDINE
     Indication: Rectal cancer metastatic
     Dosage: STRENGTH (15 TO 6.14MG PER TAB) 75 TO 30.7 MG (DOSE), TWICE DAILY DAYS 1-5 AND 15-19 (FREQUENCY)
     Route: 048
  4. BEVACIZUMAB [Suspect]
     Active Substance: BEVACIZUMAB
     Indication: Rectal cancer metastatic
     Dosage: 400 MG, Q2 WEEKS 28 DAY CYCLE
     Dates: start: 20231030
  5. ASPIRIN [Concomitant]
     Active Substance: ASPIRIN
     Dates: start: 20100624, end: 20231205
  6. ATORVASTATIN [Concomitant]
     Active Substance: ATORVASTATIN
  7. CHROMIUM PICOLINATE [Concomitant]
     Active Substance: CHROMIUM PICOLINATE
  8. CIMETIDINE [Concomitant]
     Active Substance: CIMETIDINE
  9. VITAMIN D3 ADULT [Concomitant]
  10. DOXYCYCLINE HYCLATE [Concomitant]
     Active Substance: DOXYCYCLINE HYCLATE
  11. ESCITALOPRAM OXALATE [Concomitant]
     Active Substance: ESCITALOPRAM OXALATE
  12. GARCINIA CABOGIA- CHROMIUM [Concomitant]
  13. GLUCOSAMINE SULFATE [Concomitant]
     Active Substance: GLUCOSAMINE SULFATE
  14. HERBAL TRIPLE MUSHROOM COMPLEX [Concomitant]
  15. LISINOPRIL [Concomitant]
     Active Substance: LISINOPRIL
  16. LORATADINE [Concomitant]
     Active Substance: LORATADINE
  17. LORAZEPAM [Concomitant]
     Active Substance: LORAZEPAM
  18. MAGNESIUM [Concomitant]
     Active Substance: MAGNESIUM
  19. MELATONIN [Concomitant]
     Active Substance: MELATONIN
  20. METFORMIN [Concomitant]
     Active Substance: METFORMIN HYDROCHLORIDE
  21. VITAMIN B COMPLEX [Concomitant]
     Active Substance: CYANOCOBALAMIN\DEXPANTHENOL\NIACINAMIDE\PYRIDOXINE HYDROCHLORIDE\RIBOFLAVIN 5^-PHOSPHATE SODIUM\THIA
  22. MENAQUINONE 6 [Concomitant]
     Active Substance: MENAQUINONE 6
  23. ONDANSETRON HYDROCHLORIDE [Concomitant]
     Active Substance: ONDANSETRON HYDROCHLORIDE
  24. DEXAMETHASONE [Concomitant]
     Active Substance: DEXAMETHASONE
  25. APREPITANT [Concomitant]
     Active Substance: APREPITANT
  26. ATROPINE SULPHATE INJECTION [Concomitant]
  27. PROCHLORPERAZINE MALEATE [Concomitant]
     Active Substance: PROCHLORPERAZINE MALEATE
  28. LOPERAMIDE HYDROCHLORIDE [Concomitant]
     Active Substance: LOPERAMIDE HYDROCHLORIDE
  29. MAGNESIUM SULFATE [Concomitant]
     Active Substance: MAGNESIUM SULFATE
     Dates: start: 20231030, end: 20231030
  30. BENTYL [Concomitant]
     Active Substance: DICYCLOMINE HYDROCHLORIDE
     Dates: start: 20231104, end: 20231110
  31. PANTOPRAZOLE SODIUM [Concomitant]
     Active Substance: PANTOPRAZOLE SODIUM
  32. CARAFATE [Concomitant]
     Active Substance: SUCRALFATE
  33. LASIX [Concomitant]
     Active Substance: FUROSEMIDE
     Dates: start: 20231215, end: 20231230

REACTIONS (11)
  - Enteritis [Recovered/Resolved]
  - Nausea [Unknown]
  - Vomiting [Unknown]
  - Hypomagnesaemia [Recovered/Resolved]
  - Hypokalaemia [Recovered/Resolved]
  - Hypertension [Unknown]
  - Colon cancer metastatic [Unknown]
  - Duodenal ulcer [Recovering/Resolving]
  - Anaemia [Recovering/Resolving]
  - Hypertension [Recovered/Resolved]
  - Headache [Recovered/Resolved]

NARRATIVE: CASE EVENT DATE: 20231103
